FAERS Safety Report 6768238-6 (Version None)
Quarter: 2010Q2

REPORT INFORMATION
  Report Type: 
  Country: None (occurrence: None)
  Receive Date: 20100614
  Receipt Date: 20100610
  Transmission Date: 20101027
  Serious: Yes (Life-Threatening, Hospitalization, Other)
  Sender: FDA-Public Use
  Company Number: DE-ELI_LILLY_AND_COMPANY-DE201006003139

PATIENT
  Sex: Male
  Weight: 90 kg

DRUGS (1)
  1. EFFIENT [Suspect]
     Indication: ACUTE CORONARY SYNDROME
     Dosage: 1 UNK, UNK
     Dates: start: 20100304, end: 20100420

REACTIONS (1)
  - GUILLAIN-BARRE SYNDROME [None]
